FAERS Safety Report 23889250 (Version 1)
Quarter: 2024Q2

REPORT INFORMATION
  Report Type: Report from Study
  Country: GB (occurrence: GB)
  Receive Date: 20240523
  Receipt Date: 20240523
  Transmission Date: 20240716
  Serious: Yes (Hospitalization)
  Sender: FDA-Public Use
  Company Number: GB-SAMSUNG BIOEPIS-SB-2024-15619

PATIENT
  Age: 32 Year
  Sex: Female

DRUGS (1)
  1. IMRALDI [Suspect]
     Active Substance: ADALIMUMAB
     Indication: Hidradenitis
     Dosage: 40MG/0.8ML
     Route: 058
     Dates: start: 20230913

REACTIONS (3)
  - Sepsis [Unknown]
  - COVID-19 [Unknown]
  - Decreased immune responsiveness [Unknown]
